FAERS Safety Report 18279282 (Version 1)
Quarter: 2020Q3

REPORT INFORMATION
  Report Type: Report from Study
  Country: IN (occurrence: IN)
  Receive Date: 20200917
  Receipt Date: 20200917
  Transmission Date: 20201103
  Serious: Yes (Death, Hospitalization)
  Sender: FDA-Public Use
  Company Number: NVSC2020IN253681

PATIENT
  Age: 39 Year
  Sex: Female

DRUGS (1)
  1. SPEXIB [Suspect]
     Active Substance: CERITINIB
     Indication: NON-SMALL CELL LUNG CANCER
     Dosage: 450 MG, QD
     Route: 065
     Dates: start: 20200415

REACTIONS (4)
  - Malignant neoplasm progression [Fatal]
  - Chills [Recovered/Resolved]
  - Vomiting [Recovered/Resolved]
  - Non-small cell lung cancer [Fatal]

NARRATIVE: CASE EVENT DATE: 20200820
